FAERS Safety Report 7913148-1 (Version None)
Quarter: 2011Q4

REPORT INFORMATION
  Report Type: 
  Country: None (occurrence: None)
  Receive Date: 20111114
  Receipt Date: 20111031
  Transmission Date: 20120403
  Serious: Yes (Other)
  Sender: FDA-Public Use
  Company Number: US-ELI_LILLY_AND_COMPANY-US201012001998

PATIENT
  Sex: Female

DRUGS (33)
  1. FORTEO [Suspect]
     Dosage: 20 UG, DAILY (1/D)
  2. FLOVENT [Concomitant]
  3. METHOTREXATE [Concomitant]
     Dosage: UNK, WEEKLY (1/W)
  4. FORTEO [Suspect]
     Dosage: 20 UG, DAILY (1/D)
  5. FORTEO [Suspect]
     Dosage: 20 UG, QD
  6. PAXIL [Concomitant]
  7. ASPIRIN [Concomitant]
     Dosage: 81 MG, UNK
  8. FIBER [Concomitant]
     Dosage: UNK, QD
  9. OCULAR LUBRICANT                   /00445101/ [Concomitant]
  10. HYDROCHLOROTHIAZIDE [Concomitant]
  11. OMEPRAZOLE W/SODIUM BICARBONATE [Concomitant]
  12. VICODIN [Concomitant]
  13. REMICADE [Concomitant]
     Dosage: UNK, 6/W
     Route: 042
  14. FORTEO [Suspect]
     Dosage: 20 UG, QD
  15. NEURONTIN [Concomitant]
  16. ZEGERID [Concomitant]
  17. METHOCARBAMOL [Concomitant]
  18. RESTASIS [Concomitant]
     Route: 047
  19. FORTEO [Suspect]
     Indication: OSTEOPOROSIS
     Dosage: 20 UG, DAILY (1/D)
     Dates: start: 20100801
  20. CALCIUM W/VITAMIN D NOS [Concomitant]
     Dosage: UNK, BID
  21. ASCORBIC ACID [Concomitant]
     Dosage: 1000 MG, QD
  22. TRAZODONE HCL [Concomitant]
  23. SINGULAIR [Concomitant]
  24. DILTIAZEM HCL [Concomitant]
  25. ARAVA [Concomitant]
  26. FLONASE [Concomitant]
  27. PROVENTIL                          /00139501/ [Concomitant]
  28. FORTEO [Suspect]
     Dosage: 20 UG, QD
     Dates: start: 20110926
  29. SYNTHROID [Concomitant]
     Dosage: 125 UG, 6/W
  30. MULTI-VITAMIN [Concomitant]
  31. PRED FORTE [Concomitant]
  32. VOLTAREN                                /SCH/ [Concomitant]
     Indication: ARTHROPATHY
  33. RESTASIS [Concomitant]
     Route: 047

REACTIONS (11)
  - ANKLE FRACTURE [None]
  - INJECTION SITE PAIN [None]
  - LIGAMENT SPRAIN [None]
  - FALL [None]
  - AORTIC STENOSIS [None]
  - COSTOCHONDRITIS [None]
  - RESPIRATORY TRACT INFECTION [None]
  - FLANK PAIN [None]
  - CONTUSION [None]
  - FIBULA FRACTURE [None]
  - MEMORY IMPAIRMENT [None]
